FAERS Safety Report 5934280-8 (Version None)
Quarter: 2008Q4

REPORT INFORMATION
  Report Type: 
  Country: None (occurrence: None)
  Receive Date: 20081029
  Receipt Date: 20081017
  Transmission Date: 20090506
  Serious: Yes (Other)
  Sender: FDA-Public Use
  Company Number: PHHY2008JP24153

PATIENT
  Age: 57 Year
  Sex: Male

DRUGS (3)
  1. GLEEVEC [Suspect]
     Indication: CHRONIC MYELOID LEUKAEMIA
     Dosage: 400 MG DAILY
     Route: 048
     Dates: start: 20060901
  2. GLEEVEC [Suspect]
     Dosage: 200 MG DAILY
     Route: 048
     Dates: start: 20070601, end: 20070801
  3. INTERFERON ALFA [Concomitant]
     Dosage: UNK
     Dates: start: 20080401

REACTIONS (7)
  - DRUG INTOLERANCE [None]
  - HYPERKERATOSIS [None]
  - NAIL DISORDER [None]
  - RASH GENERALISED [None]
  - RASH PRURITIC [None]
  - SKIN EXFOLIATION [None]
  - SKIN LESION [None]
